FAERS Safety Report 18725953 (Version 4)
Quarter: 2021Q4

REPORT INFORMATION
  Report Type: Report from Study
  Country: US (occurrence: US)
  Receive Date: 20210111
  Receipt Date: 20211019
  Transmission Date: 20220303
  Serious: Yes (Other)
  Sender: FDA-Public Use
  Company Number: NVSC2021US002835

PATIENT
  Sex: Male

DRUGS (1)
  1. COSENTYX [Suspect]
     Active Substance: SECUKINUMAB
     Indication: Product used for unknown indication
     Dosage: UNK
     Route: 065

REACTIONS (5)
  - Intracranial aneurysm [Unknown]
  - Cerebrovascular accident [Unknown]
  - Multiple sclerosis [Unknown]
  - Psoriatic arthropathy [Unknown]
  - Arthritis [Unknown]
